FAERS Safety Report 13830209 (Version 1)
Quarter: 2017Q3

REPORT INFORMATION
  Report Type: Spontaneous
  Country: US (occurrence: US)
  Receive Date: 20170803
  Receipt Date: 20170803
  Transmission Date: 20171127
  Serious: No
  Sender: FDA-Public Use
  Company Number: US-SA-2017SA104940

PATIENT
  Age: 65 Year
  Sex: Male

DRUGS (4)
  1. PRALUENT [Suspect]
     Active Substance: ALIROCUMAB
     Route: 058
     Dates: start: 20160930
  2. PRALUENT [Suspect]
     Active Substance: ALIROCUMAB
     Route: 058
     Dates: start: 20170220
  3. ALIROCUMAB [Concomitant]
     Active Substance: ALIROCUMAB
     Dates: start: 20170220
  4. ALIROCUMAB [Concomitant]
     Active Substance: ALIROCUMAB
     Dates: start: 20160930

REACTIONS (1)
  - Vasculitis [Unknown]

NARRATIVE: CASE EVENT DATE: 20170604
